FAERS Safety Report 13884904 (Version 1)
Quarter: 2017Q3

REPORT INFORMATION
  Report Type: Spontaneous
  Country: US (occurrence: US)
  Receive Date: 20170821
  Receipt Date: 20170821
  Transmission Date: 20171127
  Serious: No
  Sender: FDA-Public Use
  Company Number: US-LUNDBECK-DKLU2028795

PATIENT
  Sex: Male

DRUGS (2)
  1. NORTHERA [Suspect]
     Active Substance: DROXIDOPA
     Route: 048
     Dates: start: 20170328
  2. NORTHERA [Suspect]
     Active Substance: DROXIDOPA
     Indication: PARKINSON^S DISEASE
     Dosage: TITRATION SCHEDULE A
     Route: 065
     Dates: start: 20170328

REACTIONS (8)
  - Nausea [Unknown]
  - Hypertension [Unknown]
  - Incorrect dose administered [Unknown]
  - Condition aggravated [Unknown]
  - Somnolence [Unknown]
  - Malaise [Unknown]
  - Dysphagia [Unknown]
  - Oxygen saturation decreased [Unknown]
